FAERS Safety Report 14640984 (Version 1)
Quarter: 2018Q1

REPORT INFORMATION
  Report Type: Spontaneous
  Country: US (occurrence: US)
  Receive Date: 20180315
  Receipt Date: 20180315
  Transmission Date: 20180509
  Serious: Yes (Other)
  Sender: FDA-Public Use
  Company Number: US-PFIZER INC-2018106721

PATIENT

DRUGS (1)
  1. EFFEXOR XR [Suspect]
     Active Substance: VENLAFAXINE HYDROCHLORIDE
     Dosage: UNK

REACTIONS (7)
  - Withdrawal syndrome [Unknown]
  - Fear [Unknown]
  - Panic disorder [Unknown]
  - Suicidal ideation [Unknown]
  - Emotional disorder [Unknown]
  - Insomnia [Unknown]
  - Feeling of despair [Unknown]
